FAERS Safety Report 20057885 (Version 2)
Quarter: 2022Q1

REPORT INFORMATION
  Report Type: Spontaneous
  Country: CA (occurrence: CA)
  Receive Date: 20211111
  Receipt Date: 20220106
  Transmission Date: 20220423
  Serious: Yes (Other)
  Sender: FDA-Public Use
  Company Number: CA-PFIZER INC-202101482226

PATIENT
  Age: 11 Year
  Sex: Male

DRUGS (3)
  1. SOMATROPIN [Suspect]
     Active Substance: SOMATROPIN
     Indication: Short stature
     Dosage: 850 UG, 6X/WEEK (6 TIMES A WEEK) (DISCONTINUED)
     Route: 058
     Dates: start: 20180505
  2. SOMATROPIN [Suspect]
     Active Substance: SOMATROPIN
     Dosage: 1100 UG/KG, 6X/WEEK (6 TIMES A WEEK) (DISCONTINUED)
     Route: 058
  3. SOMATROPIN [Suspect]
     Active Substance: SOMATROPIN
     Dosage: 1200 UG, 6X/WEEK (6 TIMES A WEEK)
     Route: 058

REACTIONS (2)
  - Patella fracture [Not Recovered/Not Resolved]
  - Off label use [Unknown]
